FAERS Safety Report 4718747-6 (Version None)
Quarter: 2005Q3

REPORT INFORMATION
  Report Type: 
  Country: None (occurrence: None)
  Receive Date: 20050719
  Receipt Date: 20050708
  Transmission Date: 20060218
  Serious: Yes (Death, Hospitalization, Other)
  Sender: FDA-Public Use
  Company Number: 2005-07-0360

PATIENT
  Age: 50 Year
  Sex: Male

DRUGS (6)
  1. TEMODAR [Suspect]
     Indication: GLIOBLASTOMA MULTIFORME
     Dosage: 150MG QD; ORAL
     Route: 048
     Dates: start: 20050401, end: 20050101
  2. RADIATION THERAPY [Concomitant]
  3. GLIOBLASTOMA MULTIFORME [Concomitant]
  4. LAMICTAL [Concomitant]
  5. ALLEGRA [Concomitant]
  6. BACTRIM TIW [Concomitant]

REACTIONS (16)
  - ACUTE RESPIRATORY DISTRESS SYNDROME [None]
  - BLOOD PRESSURE DECREASED [None]
  - DIALYSIS [None]
  - DYSPNOEA [None]
  - HEPATIC ENZYME INCREASED [None]
  - HYPOXIA [None]
  - MALAISE [None]
  - MULTI-ORGAN FAILURE [None]
  - NAUSEA [None]
  - OCCULT BLOOD POSITIVE [None]
  - PANCYTOPENIA [None]
  - PNEUMOCYSTIS JIROVECI PNEUMONIA [None]
  - RENAL FAILURE [None]
  - TACHYCARDIA [None]
  - TACHYPNOEA [None]
  - VOMITING [None]
